FAERS Safety Report 21873340 (Version 1)
Quarter: 2023Q1

REPORT INFORMATION
  Report Type: Spontaneous
  Country: US (occurrence: US)
  Receive Date: 20230117
  Receipt Date: 20230117
  Transmission Date: 20230417
  Serious: No
  Sender: FDA-Public Use
  Company Number: US-TEVA-2022-US-2841984

PATIENT
  Age: 19 Year
  Sex: Female

DRUGS (3)
  1. CRYSELLE [Suspect]
     Active Substance: ETHINYL ESTRADIOL\NORGESTREL
     Indication: Heavy menstrual bleeding
     Dosage: 0.3MG-0.03 MG
     Dates: start: 2019
  2. CRYSELLE [Suspect]
     Active Substance: ETHINYL ESTRADIOL\NORGESTREL
     Dosage: 0.3-0.03 MG-MG
     Dates: start: 2019
  3. CRYSELLE [Suspect]
     Active Substance: ETHINYL ESTRADIOL\NORGESTREL
     Dosage: 0.3-0.03 MG-MG
     Dates: start: 2019

REACTIONS (3)
  - Polymers allergy [Not Recovered/Not Resolved]
  - Drug hypersensitivity [Recovered/Resolved with Sequelae]
  - Off label use [Unknown]

NARRATIVE: CASE EVENT DATE: 20190101
